FAERS Safety Report 7400316-0 (Version None)
Quarter: 2011Q2

REPORT INFORMATION
  Report Type: 
  Country: None (occurrence: None)
  Receive Date: 20110407
  Receipt Date: 20110329
  Transmission Date: 20111010
  Serious: Yes (Hospitalization)
  Sender: FDA-Public Use
  Company Number: AU-ASTRAZENECA-2011SE17704

PATIENT
  Age: 72 Year
  Sex: Female

DRUGS (1)
  1. SEROQUEL XR [Suspect]
     Indication: SCHIZOPHRENIA, PARANOID TYPE
     Route: 048
     Dates: start: 20090101

REACTIONS (4)
  - VENTRICULAR TACHYCARDIA [None]
  - BUNDLE BRANCH BLOCK LEFT [None]
  - DEMENTIA [None]
  - ELECTROCARDIOGRAM QT PROLONGED [None]
